FAERS Safety Report 13763649 (Version 1)
Quarter: 2017Q3

REPORT INFORMATION
  Report Type: Spontaneous
  Country: US (occurrence: US)
  Receive Date: 20170718
  Receipt Date: 20170718
  Transmission Date: 20171127
  Serious: No
  Sender: FDA-Public Use
  Company Number: US-PURDUE-USA-2017-0138636

PATIENT
  Sex: Male

DRUGS (2)
  1. APTENSIO XR [Suspect]
     Active Substance: METHYLPHENIDATE HYDROCHLORIDE
     Dosage: 20 MG, AM
     Route: 048
     Dates: start: 201704, end: 201705
  2. APTENSIO XR [Suspect]
     Active Substance: METHYLPHENIDATE HYDROCHLORIDE
     Indication: ATTENTION DEFICIT/HYPERACTIVITY DISORDER
     Dosage: 2X10 MG, AM
     Route: 048
     Dates: end: 201703

REACTIONS (4)
  - Logorrhoea [Recovered/Resolved]
  - Sedation [Recovered/Resolved]
  - Depression [Recovered/Resolved]
  - Irritability [Recovered/Resolved]
